FAERS Safety Report 14085596 (Version 1)
Quarter: 2017Q4

REPORT INFORMATION
  Report Type: Spontaneous
  Country: IE (occurrence: IE)
  Receive Date: 20171013
  Receipt Date: 20171013
  Transmission Date: 20180321
  Serious: Yes (Other)
  Sender: FDA-Public Use
  Company Number: IE-JNJFOC-20171009563

PATIENT
  Age: 76 Year
  Sex: Male

DRUGS (4)
  1. IMODIUM [Suspect]
     Active Substance: LOPERAMIDE HYDROCHLORIDE
     Indication: DIARRHOEA
     Route: 048
     Dates: start: 201707
  2. FRESUBIN [Concomitant]
     Active Substance: AMINO ACIDS\DEXTROSE\ELECTROLYTES NOS\SOYBEAN OIL\VITAMINS
     Route: 065
  3. IMODIUM [Suspect]
     Active Substance: LOPERAMIDE HYDROCHLORIDE
     Route: 048
  4. CREON [Concomitant]
     Active Substance: PANCRELIPASE AMYLASE\PANCRELIPASE LIPASE\PANCRELIPASE PROTEASE

REACTIONS (3)
  - Anxiety [Not Recovered/Not Resolved]
  - Negative thoughts [Not Recovered/Not Resolved]
  - Agitation [Not Recovered/Not Resolved]
